FAERS Safety Report 7878648 (Version 2)
Quarter: 2012Q4

REPORT INFORMATION
  Report Type: 
  Country: US (occurrence: US)
  Receive Date: 20110330
  Receipt Date: 20120910
  Transmission Date: 20130627
  Serious: Yes (Hospitalization)
  Sender: FDA-Public Use
  Company Number: US-ASTRAZENECA-2011SE11145

PATIENT
  Age: 59 Year
  Sex: Female

DRUGS (8)
  1. SYMBICORT PMDI [Suspect]
     Dosage: UNKNOWN
     Route: 055
  2. NEXIUM [Suspect]
     Route: 048
  3. CRESTOR [Suspect]
     Indication: BLOOD CHOLESTEROL INCREASED
     Route: 048
  4. LEXAPRO [Suspect]
     Route: 065
  5. LEXAPRO [Suspect]
     Dosage: GENERIC
     Route: 065
  6. PRISTIQ [Concomitant]
  7. ACTINEL [Concomitant]
  8. OSTEOFORTE [Concomitant]

REACTIONS (18)
  - Back disorder [Unknown]
  - Gait disturbance [Unknown]
  - Sensation of foreign body [Unknown]
  - Malaise [Unknown]
  - Vomiting [Unknown]
  - Hypoaesthesia [Unknown]
  - Hypoaesthesia [Unknown]
  - Muscle spasms [Unknown]
  - Gastrooesophageal reflux disease [Unknown]
  - Incontinence [Unknown]
  - Drug dose omission [Unknown]
  - Dyspnoea [Unknown]
  - Crying [Unknown]
  - Malaise [Unknown]
  - Arthralgia [Unknown]
  - Dysphonia [Unknown]
  - Nervousness [Unknown]
  - Nausea [Unknown]
